FAERS Safety Report 7134854-5 (Version None)
Quarter: 2010Q4

REPORT INFORMATION
  Report Type: 
  Country: None (occurrence: None)
  Receive Date: 20101203
  Receipt Date: 20101124
  Transmission Date: 20110411
  Serious: Yes (Other)
  Sender: FDA-Public Use
  Company Number: US-JNJFOC-20100703159

PATIENT
  Sex: Male
  Weight: 73.03 kg

DRUGS (4)
  1. REMICADE [Suspect]
     Indication: CROHN'S DISEASE
     Dosage: 11 INFUSIONS ON UNSPECIFIED DATES
     Route: 042
  2. REMICADE [Suspect]
     Route: 042
  3. REMICADE [Suspect]
     Dosage: FREQUENCY EVERY 6-8 WEEKS
     Route: 042
  4. IMURAN [Concomitant]
     Indication: CROHN'S DISEASE

REACTIONS (1)
  - PULMONARY TUBERCULOSIS [None]
